FAERS Safety Report 7861077-4 (Version None)
Quarter: 2011Q4

REPORT INFORMATION
  Report Type: 
  Country: None (occurrence: None)
  Receive Date: 20111027
  Receipt Date: 20111024
  Transmission Date: 20120403
  Serious: Yes (Other)
  Sender: FDA-Public Use
  Company Number: DE-GLAXOSMITHKLINE-D0073143A

PATIENT
  Sex: Male
  Weight: 120 kg

DRUGS (2)
  1. RISPERIDONE [Suspect]
     Indication: SCHIZOAFFECTIVE DISORDER
     Route: 048
     Dates: start: 20010101
  2. FLUTICASONE PROPIONATE/SALMETEROL [Suspect]
     Indication: SARCOIDOSIS
     Route: 055
     Dates: start: 20030101, end: 20100101

REACTIONS (3)
  - SCHIZOPHRENIA [None]
  - DRUG INTERACTION [None]
  - DRUG LEVEL DECREASED [None]
